FAERS Safety Report 6275473-2 (Version None)
Quarter: 2009Q3

REPORT INFORMATION
  Report Type: 
  Country: None (occurrence: None)
  Receive Date: 20090721
  Receipt Date: 20090713
  Transmission Date: 20100115
  Serious: Yes (Hospitalization, Disabling)
  Sender: FDA-Public Use
  Company Number: US-MERCK-0810USA02085

PATIENT
  Age: 61 Year
  Sex: Female

DRUGS (7)
  1. FOSAMAX [Suspect]
     Indication: OSTEOPOROSIS
     Route: 048
     Dates: start: 20050401, end: 20060101
  2. THEOPHYLLINE [Concomitant]
     Indication: ASTHMA
     Route: 065
     Dates: start: 19960101
  3. PREVACID [Concomitant]
     Indication: PANCREATIC CYST
     Route: 065
     Dates: start: 19960101, end: 20061101
  4. ALBUTEROL [Concomitant]
     Indication: ASTHMA
     Dates: start: 20020101
  5. ALBUTEROL [Concomitant]
     Dates: start: 19960101
  6. HYDROCODONE [Concomitant]
     Indication: PAIN
     Route: 065
     Dates: start: 20020101
  7. LEVAQUIN [Concomitant]
     Indication: BRONCHITIS
     Route: 065
     Dates: start: 20020101

REACTIONS (10)
  - BLADDER DISORDER [None]
  - BRONCHITIS [None]
  - CELLULITIS [None]
  - CHRONIC OBSTRUCTIVE PULMONARY DISEASE [None]
  - EMPHYSEMA [None]
  - GASTRIC DISORDER [None]
  - JAW DISORDER [None]
  - OEDEMA [None]
  - OSTEONECROSIS [None]
  - PANCREATIC PSEUDOCYST [None]
